FAERS Safety Report 19429764 (Version 5)
Quarter: 2021Q3

REPORT INFORMATION
  Report Type: Report from Study
  Country: US (occurrence: US)
  Receive Date: 20210617
  Receipt Date: 20210818
  Transmission Date: 20211014
  Serious: No
  Sender: FDA-Public Use
  Company Number: NVSC2021US131334

PATIENT
  Sex: Female

DRUGS (2)
  1. LISTERINE ORIGINAL [Concomitant]
     Active Substance: EUCALYPTOL\MENTHOL\METHYL SALICYLATE\THYMOL
     Indication: PRODUCT USED FOR UNKNOWN INDICATION
     Dosage: UNK
     Route: 065
  2. PIQRAY [Suspect]
     Active Substance: ALPELISIB
     Indication: BREAST CANCER
     Dosage: 300 MG, QD
     Route: 048

REACTIONS (6)
  - Oral mucosal blistering [Unknown]
  - Feeding disorder [Unknown]
  - Asthenia [Unknown]
  - Fatigue [Unknown]
  - Oral discomfort [Unknown]
  - Dizziness [Unknown]
